FAERS Safety Report 9222947 (Version 2)
Quarter: 2013Q2

REPORT INFORMATION
  Report Type: Spontaneous
  Country: PT (occurrence: PT)
  Receive Date: 20130410
  Receipt Date: 20130624
  Transmission Date: 20140414
  Serious: Yes (Other)
  Sender: FDA-Public Use
  Company Number: PT-ROCHE-1210646

PATIENT
  Age: 63 Year
  Sex: Male

DRUGS (2)
  1. ACTILYSE [Suspect]
     Indication: ISCHAEMIC STROKE
     Route: 042
  2. OCTAGAM [Suspect]
     Indication: ISCHAEMIC STROKE
     Route: 065

REACTIONS (4)
  - Cerebral haematoma [Unknown]
  - Cerebral haematoma [Unknown]
  - Hemianopia homonymous [Unknown]
  - Drug ineffective [Unknown]
